FAERS Safety Report 4308902-1 (Version None)
Quarter: 2004Q1

REPORT INFORMATION
  Report Type: 
  Country: None (occurrence: None)
  Receive Date: 20040302
  Receipt Date: 20040223
  Transmission Date: 20041129
  Serious: Yes (Other)
  Sender: FDA-Public Use
  Company Number: PHNU2004DE00986

PATIENT
  Age: 45 Year
  Sex: Male

DRUGS (2)
  1. LAMISIL [Suspect]
     Indication: ERYSIPELAS
     Dates: start: 20030820
  2. ALCOHOL [Suspect]

REACTIONS (3)
  - ALCOHOLISM [None]
  - MEAN CELL VOLUME INCREASED [None]
  - TRANSFERRIN INCREASED [None]
